FAERS Safety Report 15370174 (Version 1)
Quarter: 2018Q3

REPORT INFORMATION
  Report Type: Spontaneous
  Country: US (occurrence: US)
  Receive Date: 20180911
  Receipt Date: 20180911
  Transmission Date: 20181010
  Serious: No
  Sender: FDA-Public Use
  Company Number: US-PFIZER INC-2018362643

PATIENT

DRUGS (2)
  1. XELJANZ [Suspect]
     Active Substance: TOFACITINIB CITRATE
     Indication: RHEUMATOID ARTHRITIS
     Dosage: UNK
     Dates: start: 201712, end: 201807
  2. XELJANZ [Suspect]
     Active Substance: TOFACITINIB CITRATE
     Indication: MULTIPLE SCLEROSIS

REACTIONS (1)
  - Migraine [Unknown]
